FAERS Safety Report 12438079 (Version 5)
Quarter: 2016Q4

REPORT INFORMATION
  Report Type: Report from Study
  Country: CN (occurrence: CN)
  Receive Date: 20160606
  Receipt Date: 20161012
  Transmission Date: 20170207
  Serious: Yes (Hospitalization)
  Sender: FDA-Public Use
  Company Number: CN-GLAXOSMITHKLINE-CN2016078184

PATIENT
  Age: 53 Year
  Sex: Male
  Weight: 65 kg

DRUGS (5)
  1. CIMETIDINE [Concomitant]
     Active Substance: CIMETIDINE
     Indication: GASTRITIS
     Dosage: 0.8 G, QD
     Route: 042
     Dates: start: 20160520, end: 20160520
  2. GLYCERINE ENEMA [Concomitant]
     Indication: BENIGN PROSTATIC HYPERPLASIA
     Dosage: 20 ML, PRN
     Route: 054
     Dates: start: 20160520, end: 20160520
  3. UMECLIDINIUM BR+VILANTEROL TRIFENATATE [Suspect]
     Active Substance: UMECLIDINIUM BROMIDE\VILANTEROL TRIFENATATE
     Indication: CHRONIC OBSTRUCTIVE PULMONARY DISEASE
     Dosage: 1 PUFF(S), QD
     Route: 055
     Dates: start: 20150824, end: 20160824
  4. AOXIKANG [Concomitant]
     Indication: GASTRITIS
     Dosage: 40 MG, QD
     Route: 042
     Dates: start: 20160520, end: 20160520
  5. AMINO ACIDS [Concomitant]
     Active Substance: AMINO ACIDS
     Indication: BENIGN PROSTATIC HYPERPLASIA
     Dosage: 250 ML, BID
     Route: 042
     Dates: start: 20160520, end: 20160520

REACTIONS (1)
  - Benign prostatic hyperplasia [Recovered/Resolved]

NARRATIVE: CASE EVENT DATE: 20160516
